FAERS Safety Report 11068077 (Version 1)
Quarter: 2015Q2

REPORT INFORMATION
  Report Type: Spontaneous
  Country: US (occurrence: None)
  Receive Date: 20150424
  Receipt Date: 20150424
  Transmission Date: 20150821
  Serious: No
  Sender: FDA-Public Use
  Company Number: None

PATIENT
  Sex: Female

DRUGS (13)
  1. SPRYCEL [Suspect]
     Active Substance: DASATINIB
     Indication: CHRONIC MYELOID LEUKAEMIA
     Route: 048
     Dates: start: 20150129
  2. ONDANSETRON [Concomitant]
     Active Substance: ONDANSETRON
  3. ATIVAN [Concomitant]
     Active Substance: LORAZEPAM
  4. BENADRYL [Concomitant]
     Active Substance: DIPHENHYDRAMINE HYDROCHLORIDE
  5. VITAMIN C [Concomitant]
     Active Substance: ASCORBIC ACID
  6. OXYCODONE [Concomitant]
     Active Substance: OXYCODONE
  7. VITAMIN D [Concomitant]
     Active Substance: CHOLECALCIFEROL
  8. FIBER [Concomitant]
     Active Substance: PSYLLIUM HUSK
  9. EXCEDRIN [Concomitant]
     Active Substance: ACETAMINOPHEN\ASPIRIN\CAFFEINE
  10. FAMOTIDINE. [Concomitant]
     Active Substance: FAMOTIDINE
  11. LORAZEPAM. [Concomitant]
     Active Substance: LORAZEPAM
  12. ALLOPURINOL. [Concomitant]
     Active Substance: ALLOPURINOL
  13. MAGNESIUM [Concomitant]
     Active Substance: MAGNESIUM

REACTIONS (2)
  - Swelling [None]
  - Nausea [None]
